FAERS Safety Report 13078417 (Version 2)
Quarter: 2017Q1

REPORT INFORMATION
  Report Type: Spontaneous
  Country: US (occurrence: US)
  Receive Date: 20170102
  Receipt Date: 20170308
  Transmission Date: 20170428
  Serious: No
  Sender: FDA-Public Use
  Company Number: US-ASTRAZENECA-2016SF38061

PATIENT
  Age: 549 Month
  Sex: Female
  Weight: 49 kg

DRUGS (43)
  1. GABAPENTIN. [Concomitant]
     Active Substance: GABAPENTIN
     Indication: VESTIBULAR DISORDER
     Route: 048
  2. COMBIVENT [Concomitant]
     Active Substance: ALBUTEROL SULFATE\IPRATROPIUM BROMIDE
  3. DUONEB [Concomitant]
     Active Substance: ALBUTEROL SULFATE\IPRATROPIUM BROMIDE
  4. MAGNESIUM [Concomitant]
     Active Substance: MAGNESIUM
  5. VITAMIN C [Concomitant]
     Active Substance: ASCORBIC ACID
  6. VITAMIN D3 [Concomitant]
     Active Substance: CHOLECALCIFEROL
  7. MULTI VITAMIN [Concomitant]
     Active Substance: VITAMINS
  8. FLOVENT [Concomitant]
     Active Substance: FLUTICASONE PROPIONATE
  9. L-LYSINE [Concomitant]
     Active Substance: LYSINE
  10. PROLIA [Concomitant]
     Active Substance: DENOSUMAB
  11. PROVENTIL HFA INHALER [Concomitant]
  12. TAGRISSO [Suspect]
     Active Substance: OSIMERTINIB
     Indication: LUNG CARCINOMA CELL TYPE UNSPECIFIED STAGE I
     Route: 048
     Dates: start: 201609
  13. AMITRIPTYLINE [Concomitant]
     Active Substance: AMITRIPTYLINE
     Indication: VESTIBULAR DISORDER
     Route: 048
     Dates: end: 201611
  14. VALIUM [Concomitant]
     Active Substance: DIAZEPAM
     Indication: TINNITUS
     Dosage: 5.0MG AS REQUIRED
     Route: 048
     Dates: start: 2016
  15. XANAX [Concomitant]
     Active Substance: ALPRAZOLAM
     Indication: PANIC ATTACK
     Dosage: 0.25MG AS REQUIRED
     Route: 048
     Dates: start: 201508
  16. XANAX [Concomitant]
     Active Substance: ALPRAZOLAM
     Indication: PANIC ATTACK
     Dosage: 0.5MG AS REQUIRED
     Route: 048
     Dates: start: 201508
  17. XGEVA [Concomitant]
     Active Substance: DENOSUMAB
     Indication: METASTASES TO BONE
     Dosage: EVERY SIX WEEKS
     Route: 030
  18. ALBUTEROL SULFATE. [Concomitant]
     Active Substance: ALBUTEROL SULFATE
     Dosage: UNKNOWN
     Route: 065
  19. IRON [Concomitant]
     Active Substance: IRON
  20. MILK THISTLE [Concomitant]
     Active Substance: MILK THISTLE
  21. TAGRISSO [Suspect]
     Active Substance: OSIMERTINIB
     Indication: NON-SMALL CELL LUNG CANCER METASTATIC
     Route: 048
     Dates: start: 20170120
  22. AMITRIPTYLINE [Concomitant]
     Active Substance: AMITRIPTYLINE
     Indication: VESTIBULAR DISORDER
     Route: 048
  23. GABAPENTIN. [Concomitant]
     Active Substance: GABAPENTIN
     Indication: VESTIBULAR DISORDER
     Route: 048
     Dates: start: 201512
  24. TOLTERODINE [Concomitant]
     Active Substance: TOLTERODINE
     Indication: URINARY INCONTINENCE
     Route: 048
     Dates: start: 201612
  25. XGEVA [Concomitant]
     Active Substance: DENOSUMAB
     Indication: METASTASES TO BONE
     Dosage: EVERY SIX WEEKS
     Route: 030
  26. HYDROCODONE BITARTRATE AND ACETAMINOPHEN [Concomitant]
     Active Substance: ACETAMINOPHEN\HYDROCODONE BITARTRATE
  27. NORTRIPTYLINE HYDROCHLORIDE. [Concomitant]
     Active Substance: NORTRIPTYLINE HYDROCHLORIDE
  28. NYSTATIN. [Concomitant]
     Active Substance: NYSTATIN
  29. POTASSIUM [Concomitant]
     Active Substance: POTASSIUM
  30. TAGRISSO [Suspect]
     Active Substance: OSIMERTINIB
     Indication: NON-SMALL CELL LUNG CANCER METASTATIC
     Route: 048
     Dates: start: 201609
  31. GABAPENTIN. [Concomitant]
     Active Substance: GABAPENTIN
     Indication: VESTIBULAR DISORDER
     Route: 048
     Dates: start: 201510
  32. BACLOFEN. [Concomitant]
     Active Substance: BACLOFEN
     Indication: MUSCLE SPASMS
     Route: 048
     Dates: start: 2015
  33. VITAMIN B COMPLEX [Concomitant]
     Active Substance: CYANOCOBALAMIN\DEXPANTHENOL\NIACINAMIDE\PYRIDOXINE HYDROCHLORIDE\RIBOFLAVIN 5^-PHOSPHATE SODIUM\THIAMINE HYDROCHLORIDE\VITAMIN B COMPLEX
     Dosage: UNKNOWN
     Route: 065
  34. CALCIUM [Concomitant]
     Active Substance: CALCIUM
  35. GARLIC. [Concomitant]
     Active Substance: GARLIC
  36. MELATONIN [Concomitant]
     Active Substance: MELATONIN
  37. DIAZEPAM. [Concomitant]
     Active Substance: DIAZEPAM
  38. TOLTERODINE L-TARTRATE [Concomitant]
     Active Substance: TOLTERODINE TARTRATE
  39. TAGRISSO [Suspect]
     Active Substance: OSIMERTINIB
     Indication: LUNG CARCINOMA CELL TYPE UNSPECIFIED STAGE I
     Route: 048
     Dates: start: 20170120
  40. NORTRIPTYLINE [Concomitant]
     Active Substance: NORTRIPTYLINE
     Indication: VESTIBULAR DISORDER
     Route: 048
     Dates: start: 201611
  41. TARCEVA [Concomitant]
     Active Substance: ERLOTINIB HYDROCHLORIDE
     Indication: NEOPLASM MALIGNANT
     Dosage: UNKNOWN
     Route: 065
  42. PROBIOTIC [Concomitant]
     Active Substance: PROBIOTICS NOS
  43. ZOFRAN [Concomitant]
     Active Substance: ONDANSETRON HYDROCHLORIDE

REACTIONS (10)
  - Dysphonia [Unknown]
  - Trichorrhexis [Not Recovered/Not Resolved]
  - Weight increased [Unknown]
  - Tooth disorder [Unknown]
  - Hair texture abnormal [Not Recovered/Not Resolved]
  - Pain [Unknown]
  - Hand fracture [Unknown]
  - Cerebral disorder [Unknown]
  - Mass [Unknown]
  - Muscle spasms [Unknown]

NARRATIVE: CASE EVENT DATE: 201609
